FAERS Safety Report 9500181 (Version 1)
Quarter: 2013Q3

REPORT INFORMATION
  Report Type: Report from Study
  Country: BR (occurrence: BR)
  Receive Date: 20130905
  Receipt Date: 20130905
  Transmission Date: 20140515
  Serious: Yes (Death, Other)
  Sender: FDA-Public Use
  Company Number: PHHY2013BR096988

PATIENT
  Sex: Female
  Weight: 60 kg

DRUGS (2)
  1. DIOVAN HCT [Suspect]
     Indication: HYPERTENSION
     Dosage: 1 DF, DAILY
     Route: 048
     Dates: end: 20121113
  2. SYNTHROID [Concomitant]
     Indication: THYROID DISORDER
     Dosage: 1 DF, DAILY
     Route: 048
     Dates: start: 2008

REACTIONS (4)
  - Breast cancer [Fatal]
  - Metastases to lung [Fatal]
  - Dyspnoea [Fatal]
  - Blood pressure decreased [Not Recovered/Not Resolved]
